FAERS Safety Report 17214063 (Version 1)
Quarter: 2019Q4

REPORT INFORMATION
  Report Type: Spontaneous
  Country: US (occurrence: US)
  Receive Date: 20191230
  Receipt Date: 20191230
  Transmission Date: 20200122
  Serious: No
  Sender: FDA-Public Use
  Company Number: US-PFIZER INC-2019461488

PATIENT
  Age: 73 Year
  Sex: Male

DRUGS (4)
  1. SUTENT [Suspect]
     Active Substance: SUNITINIB MALATE
     Indication: RENAL CANCER
     Dosage: 25 MG, CYCLIC (TAKE SUTENT DAILY X14 DAYS, HOLD 7 DAYS)
     Route: 048
  2. SUTENT [Suspect]
     Active Substance: SUNITINIB MALATE
     Dosage: 25 MG, CYCLIC (REDUCED TO DAILY ONE WEEK ON/ONE WEEK OFF)
  3. SUTENT [Suspect]
     Active Substance: SUNITINIB MALATE
     Dosage: 37.5 MG, CYCLIC (TWO WEEKS ON/ONE WEEK OFF SCHEDULE)
     Dates: start: 20180904
  4. NIVOLUMAB [Concomitant]
     Active Substance: NIVOLUMAB
     Indication: METASTATIC RENAL CELL CARCINOMA
     Dosage: UNK

REACTIONS (4)
  - Dry mouth [Unknown]
  - Taste disorder [Not Recovered/Not Resolved]
  - Colitis [Recovering/Resolving]
  - Weight decreased [Not Recovered/Not Resolved]
